FAERS Safety Report 7340216-8 (Version None)
Quarter: 2011Q1

REPORT INFORMATION
  Report Type: 
  Country: None (occurrence: None)
  Receive Date: 20110309
  Receipt Date: 20110226
  Transmission Date: 20110831
  Serious: Yes (Hospitalization)
  Sender: FDA-Public Use
  Company Number: AU-NOVOPROD-324139

PATIENT
  Sex: Male

DRUGS (2)
  1. PROTAPHANE PENFILL [Suspect]
     Indication: PRODUCT USED FOR UNKNOWN INDICATION
  2. NOVORAPID PENFILL [Suspect]
     Indication: PRODUCT USED FOR UNKNOWN INDICATION

REACTIONS (1)
  - INFECTION [None]
